FAERS Safety Report 18078094 (Version 1)
Quarter: 2020Q3

REPORT INFORMATION
  Report Type: Report from Study
  Country: US (occurrence: US)
  Receive Date: 20200728
  Receipt Date: 20200728
  Transmission Date: 20201103
  Serious: Yes (Hospitalization)
  Sender: FDA-Public Use
  Company Number: US-COVIS PHARMA B.V.-2020COV00308

PATIENT
  Age: 59 Year
  Sex: Female
  Weight: 128.8 kg

DRUGS (19)
  1. LISINOPRIL. [Concomitant]
     Active Substance: LISINOPRIL
     Dosage: 40 UNK
  2. OMEPRAZOLE MAGNESIUM. [Suspect]
     Active Substance: OMEPRAZOLE MAGNESIUM
     Dosage: 20 UNK
     Route: 048
  3. METFORMIN [Concomitant]
     Active Substance: METFORMIN HYDROCHLORIDE
     Dosage: 1000 UNK
  4. TRAZODONE [Concomitant]
     Active Substance: TRAZODONE HYDROCHLORIDE
     Dosage: 300 UNK
  5. ALLOPURINOL. [Concomitant]
     Active Substance: ALLOPURINOL
  6. MUCINEX DM [Concomitant]
     Active Substance: DEXTROMETHORPHAN HYDROBROMIDE\GUAIFENESIN
  7. CARVEDILOL. [Concomitant]
     Active Substance: CARVEDILOL
     Dosage: 6.25 UNK
  8. TAGRISSO [Suspect]
     Active Substance: OSIMERTINIB
     Indication: LUNG CARCINOMA CELL TYPE UNSPECIFIED STAGE 0
     Dosage: 80 MG, 1X/DAY
     Route: 048
     Dates: start: 20190412, end: 2020
  9. ADVAIR DISKUS [Concomitant]
     Active Substance: FLUTICASONE PROPIONATE\SALMETEROL XINAFOATE
  10. FLUTICASONE. [Concomitant]
     Active Substance: FLUTICASONE
     Dosage: 50 UNK
  11. LYRICA [Concomitant]
     Active Substance: PREGABALIN
     Dosage: 100 UNK
  12. TESSALON [Concomitant]
     Active Substance: BENZONATATE
  13. BUDESONIDE. [Suspect]
     Active Substance: BUDESONIDE
     Route: 055
  14. ESTRADIOL. [Concomitant]
     Active Substance: ESTRADIOL
     Dosage: 2 UNK
  15. PAXIL [Concomitant]
     Active Substance: PAROXETINE HYDROCHLORIDE
     Dosage: 40 UNK
  16. TAGRISSO [Suspect]
     Active Substance: OSIMERTINIB
     Dosage: UNK
     Dates: start: 2020
  17. ALBUTEROL. [Concomitant]
     Active Substance: ALBUTEROL
  18. FUROSEMIDE. [Concomitant]
     Active Substance: FUROSEMIDE
     Dosage: 40 UNK
  19. SOTALOL. [Concomitant]
     Active Substance: SOTALOL
     Dosage: 120 UNK

REACTIONS (2)
  - Skin ulcer [Unknown]
  - Fatigue [Unknown]

NARRATIVE: CASE EVENT DATE: 20200302
